FAERS Safety Report 11110265 (Version 2)
Quarter: 2015Q2

REPORT INFORMATION
  Report Type: Spontaneous
  Country: US (occurrence: US)
  Receive Date: 20150513
  Receipt Date: 20150604
  Transmission Date: 20150821
  Serious: Yes (Hospitalization, Other)
  Sender: FDA-Public Use
  Company Number: US-GLAXOSMITHKLINE-US2015GSK063918

PATIENT
  Sex: Female
  Weight: 17 kg

DRUGS (1)
  1. ZOFRAN [Suspect]
     Active Substance: ONDANSETRON HYDROCHLORIDE
     Indication: PRODUCT USED FOR UNKNOWN INDICATION
     Dosage: 64 MG, QD

REACTIONS (7)
  - Overdose [Recovered/Resolved]
  - Ataxia [Recovered/Resolved]
  - Accidental exposure to product [Unknown]
  - Mydriasis [Recovered/Resolved]
  - Tachycardia [Recovered/Resolved]
  - Depressed level of consciousness [Recovered/Resolved]
  - Endotracheal intubation [Unknown]
